FAERS Safety Report 21302546 (Version 6)
Quarter: 2022Q4

REPORT INFORMATION
  Report Type: Spontaneous
  Country: IN (occurrence: IN)
  Receive Date: 20220907
  Receipt Date: 20221115
  Transmission Date: 20230113
  Serious: Yes (Hospitalization, Other)
  Sender: FDA-Public Use
  Company Number: IN-PFIZER INC-PV202200024104

PATIENT
  Age: 45 Year
  Sex: Male

DRUGS (27)
  1. LORLATINIB [Suspect]
     Active Substance: LORLATINIB
     Dosage: 100 MG, 1X/DAY
     Route: 048
     Dates: start: 20220608, end: 20220611
  2. LORLATINIB [Suspect]
     Active Substance: LORLATINIB
     Dosage: 100 MG, 1X/DAY
     Route: 048
     Dates: start: 202206, end: 202206
  3. LORLATINIB [Suspect]
     Active Substance: LORLATINIB
     Dosage: 75 MG, 1X/DAY
     Route: 048
  4. LORLATINIB [Suspect]
     Active Substance: LORLATINIB
     Dosage: UNK
     Dates: end: 20220725
  5. LORLATINIB [Suspect]
     Active Substance: LORLATINIB
     Dosage: UNK
     Dates: end: 20220831
  6. CARBOPLATIN [Suspect]
     Active Substance: CARBOPLATIN
     Dosage: 600 MG CYCLE 1
     Dates: start: 20220606
  7. CARBOPLATIN [Suspect]
     Active Substance: CARBOPLATIN
     Dosage: 600 MG CYCLE 2 WEEK 1
     Dates: start: 20220627
  8. CARBOPLATIN [Suspect]
     Active Substance: CARBOPLATIN
     Dosage: 600 MG CYCLE 2 WEEK 2
     Dates: start: 20220704
  9. CARBOPLATIN [Suspect]
     Active Substance: CARBOPLATIN
     Dosage: 600 MG CYCLE 2 WEEK 3
     Dates: start: 20220711
  10. CARBOPLATIN [Suspect]
     Active Substance: CARBOPLATIN
     Dosage: 600 MG CYCLE 3 WEEK 1
     Dates: start: 20220718
  11. CARBOPLATIN [Suspect]
     Active Substance: CARBOPLATIN
     Dosage: 600 MG CYCLE 3 WEEK 2
     Dates: start: 20220725
  12. CARBOPLATIN [Suspect]
     Active Substance: CARBOPLATIN
     Dosage: 600 MG CYCLE 3 WEEK 3
     Dates: start: 20220801
  13. CARBOPLATIN [Suspect]
     Active Substance: CARBOPLATIN
     Dosage: 600 MG CYCLE 4 WEEK 1
     Dates: start: 20220808
  14. CARBOPLATIN [Suspect]
     Active Substance: CARBOPLATIN
     Dosage: 600 MG CYCLE 4 WEEK 2
     Dates: start: 20220816
  15. CARBOPLATIN [Suspect]
     Active Substance: CARBOPLATIN
     Dosage: 600 MG CYCLE 4 WEEK 3
     Dates: start: 20220822
  16. PEMETREXED [Suspect]
     Active Substance: PEMETREXED
     Dosage: 800 MG CYCLE 1
     Dates: start: 20220606
  17. PEMETREXED [Suspect]
     Active Substance: PEMETREXED
     Dosage: 800 MG CYCLE 2 WEEK 1
     Dates: start: 20220627
  18. PEMETREXED [Suspect]
     Active Substance: PEMETREXED
     Dosage: 800 MG CYCLE 3 WEEK 1
     Dates: start: 20220718
  19. PEMETREXED [Suspect]
     Active Substance: PEMETREXED
     Dosage: 800 MG CYCLE 4 WEEK 1
     Dates: start: 20220808
  20. CAMPHOR\GLYCERIN\MENTHOL\ZINC OXIDE [Concomitant]
     Active Substance: CAMPHOR\GLYCERIN\MENTHOL\ZINC OXIDE
     Dosage: 40 MG, 1X/DAY 1-0-0 (BEFORE FOOD)
  21. CAMPHOR\GLYCERIN\MENTHOL\ZINC OXIDE [Concomitant]
     Active Substance: CAMPHOR\GLYCERIN\MENTHOL\ZINC OXIDE
     Dosage: 30 MG, 1X/DAY 1-0-0 (BEFORE FOOD)
  22. CALCIUM\CHOLECALCIFEROL [Concomitant]
     Active Substance: CALCIUM\CHOLECALCIFEROL
     Dosage: 500 MG, 1X/DAY 0-1-0 (AFTER FOOD)
  23. LEVETIRACETAM [Concomitant]
     Active Substance: LEVETIRACETAM
     Dosage: 500 MG, 2X/DAY 1-0-1 (AFTER FOOD)
  24. SILOFAST D [Concomitant]
     Dosage: 8 MG
  25. SILOFAST D [Concomitant]
     Dosage: 0.5 MG, 1X/DAY
  26. MAXGALIN [Concomitant]
     Dosage: 75 MG, 1X/DAY 0-0-1 (AFTER FOOD)
  27. DICORATE [Concomitant]
     Dosage: 500 MG, 2X/DAY (1-0-1)

REACTIONS (11)
  - Diarrhoea [Unknown]
  - Seizure [Unknown]
  - Pyrexia [Unknown]
  - Neutropenic sepsis [Recovered/Resolved]
  - Platelet count decreased [Unknown]
  - Haemoglobin decreased [Unknown]
  - Lymphocyte percentage decreased [Unknown]
  - Neutrophil percentage increased [Unknown]
  - Dizziness [Unknown]
  - Muscular weakness [Unknown]
  - Expired product administered [Unknown]

NARRATIVE: CASE EVENT DATE: 20220601
